FAERS Safety Report 16250075 (Version 1)
Quarter: 2019Q2

REPORT INFORMATION
  Report Type: Spontaneous
  Country: LV (occurrence: LV)
  Receive Date: 20190429
  Receipt Date: 20190429
  Transmission Date: 20190711
  Serious: Yes (Other)
  Sender: FDA-Public Use
  Company Number: LV-GE HEALTHCARE LIFE SCIENCES-2019CSU002198

PATIENT

DRUGS (23)
  1. VISIPAQUE [Suspect]
     Active Substance: IODIXANOL
     Indication: PERCUTANEOUS CORONARY INTERVENTION
     Dosage: UNK UNK, SINGLE
     Route: 064
     Dates: start: 20101120, end: 20101120
  2. MORPHINE [Suspect]
     Active Substance: MORPHINE
     Indication: ACUTE MYOCARDIAL INFARCTION
     Dosage: UNK
     Route: 064
     Dates: start: 20101120
  3. POTASSIUM CHLORIDE. [Suspect]
     Active Substance: POTASSIUM CHLORIDE
     Indication: PULMONARY EMBOLISM
     Dosage: 7.45 %, UNK
     Route: 064
     Dates: start: 20101120
  4. POTASSIUM CHLORIDE. [Suspect]
     Active Substance: POTASSIUM CHLORIDE
     Indication: ACUTE MYOCARDIAL INFARCTION
  5. LOW MOLECULAR WEIGHT HEPARIN [Suspect]
     Active Substance: UNSPECIFIED INGREDIENT
     Indication: PULMONARY EMBOLISM
     Dosage: UNK
     Route: 064
     Dates: start: 20101120
  6. LOW MOLECULAR WEIGHT HEPARIN [Suspect]
     Active Substance: UNSPECIFIED INGREDIENT
     Indication: ACUTE MYOCARDIAL INFARCTION
  7. ISOSORBIDE DINITRATE. [Suspect]
     Active Substance: ISOSORBIDE DINITRATE
     Indication: ACUTE MYOCARDIAL INFARCTION
     Dosage: UNK
     Route: 064
     Dates: start: 20101120
  8. ASPIRIN. [Suspect]
     Active Substance: ASPIRIN
     Indication: PRODUCT USED FOR UNKNOWN INDICATION
     Dosage: 500 MG, SINGLE
     Route: 064
     Dates: start: 20101120, end: 20101120
  9. NORADRENALINE [Suspect]
     Active Substance: NOREPINEPHRINE
     Indication: HAEMODYNAMIC INSTABILITY
     Dosage: 0.12 ?G/KG, UNK
     Route: 064
     Dates: start: 20101120
  10. MAGNESIUM SULFATE. [Suspect]
     Active Substance: MAGNESIUM SULFATE
     Indication: PULMONARY EMBOLISM
     Dosage: UNK
     Route: 064
     Dates: start: 20101120
  11. VISIPAQUE [Suspect]
     Active Substance: IODIXANOL
     Indication: ACUTE MYOCARDIAL INFARCTION
  12. ISOSORBIDE DINITRATE. [Suspect]
     Active Substance: ISOSORBIDE DINITRATE
     Indication: PULMONARY EMBOLISM
  13. FONDAPARINUX [Suspect]
     Active Substance: FONDAPARINUX
     Indication: PRODUCT USED FOR UNKNOWN INDICATION
     Dosage: UNK
     Route: 064
     Dates: start: 20101120, end: 20101120
  14. HEPARIN [Suspect]
     Active Substance: HEPARIN SODIUM
     Indication: PRODUCT USED FOR UNKNOWN INDICATION
     Dosage: 7000 UT, SINGLE
     Route: 065
     Dates: start: 20101120, end: 20101120
  15. DOBUTAMINE [Suspect]
     Active Substance: DOBUTAMINE\DOBUTAMINE HYDROCHLORIDE
     Indication: HAEMODYNAMIC INSTABILITY
     Dosage: 5 ?G/KG, UNK
     Route: 064
     Dates: start: 20101120
  16. LEVOSIMENDAN [Suspect]
     Active Substance: LEVOSIMENDAN
     Indication: HAEMODYNAMIC INSTABILITY
     Dosage: 0.1 ?G/KG, UNK
     Route: 064
     Dates: start: 20101120
  17. MAGNESIUM SULFATE. [Suspect]
     Active Substance: MAGNESIUM SULFATE
     Indication: ACUTE MYOCARDIAL INFARCTION
  18. OXYGEN. [Suspect]
     Active Substance: OXYGEN
     Indication: PRODUCT USED FOR UNKNOWN INDICATION
     Dosage: SATURATED
     Route: 064
     Dates: start: 20101120
  19. INTEGRILIN [Suspect]
     Active Substance: EPTIFIBATIDE
     Indication: PRODUCT USED FOR UNKNOWN INDICATION
     Dosage: 180 MG, SINGLE
     Route: 064
     Dates: start: 20101120, end: 20101120
  20. DOBUTAMINE [Suspect]
     Active Substance: DOBUTAMINE\DOBUTAMINE HYDROCHLORIDE
     Dosage: UNK
     Route: 065
  21. MORPHINE [Suspect]
     Active Substance: MORPHINE
     Indication: PULMONARY EMBOLISM
  22. METOPROLOL. [Suspect]
     Active Substance: METOPROLOL
     Indication: ACUTE MYOCARDIAL INFARCTION
     Dosage: UNK
     Route: 064
     Dates: start: 20101120
  23. METOPROLOL. [Suspect]
     Active Substance: METOPROLOL
     Indication: PULMONARY EMBOLISM

REACTIONS (2)
  - Foetal exposure during pregnancy [Unknown]
  - Apgar score low [Unknown]

NARRATIVE: CASE EVENT DATE: 20101120
